FAERS Safety Report 16078274 (Version 1)
Quarter: 2019Q2

REPORT INFORMATION
  Report Type: Spontaneous
  Country: US (occurrence: US)
  Receive Date: 20190315
  Receipt Date: 20190315
  Transmission Date: 20190711
  Serious: Yes (Life-Threatening)
  Sender: FDA-Public Use
  Company Number: None

PATIENT
  Age: 56 Year
  Sex: Female
  Weight: 63.9 kg

DRUGS (10)
  1. IRON [Concomitant]
     Active Substance: IRON
  2. COQ10 [Concomitant]
     Active Substance: UBIDECARENONE
  3. ZYRTEC [Concomitant]
     Active Substance: CETIRIZINE HYDROCHLORIDE
  4. OMEGA OIL [Concomitant]
  5. REPATHA [Concomitant]
     Active Substance: EVOLOCUMAB
  6. VITAMIN D3 [Concomitant]
     Active Substance: CHOLECALCIFEROL
  7. VITAMIN K2 [Concomitant]
     Active Substance: MENAQUINONE 6
  8. BABY ASPIRIN [Concomitant]
     Active Substance: ASPIRIN
  9. EDARBI [Suspect]
     Active Substance: AZILSARTAN KAMEDOXOMIL
     Indication: HYPERTENSION
     Dosage: ?          QUANTITY:1 TABLET(S);?
     Route: 048
     Dates: start: 20190309, end: 20190314
  10. PRINIVIL [Concomitant]
     Active Substance: LISINOPRIL

REACTIONS (2)
  - Presyncope [None]
  - Heart rate decreased [None]

NARRATIVE: CASE EVENT DATE: 20190313
